FAERS Safety Report 7177239-8 (Version None)
Quarter: 2010Q4

REPORT INFORMATION
  Report Type: 
  Country: None (occurrence: None)
  Receive Date: 20101220
  Receipt Date: 20101213
  Transmission Date: 20110411
  Serious: Yes (Life-Threatening)
  Sender: FDA-Public Use
  Company Number: JP-ROCHE-738211

PATIENT
  Sex: Male

DRUGS (2)
  1. ROCEPHIN [Suspect]
     Indication: PNEUMONIA
     Dosage: DOSAGE IS UNCERTAIN, INDICATION: PNEUMONIA
     Route: 041
     Dates: start: 20100831, end: 20100831
  2. ROCEPHIN [Suspect]
     Dosage: INDICATION: COPD
     Route: 041
     Dates: start: 20101019, end: 20101019

REACTIONS (2)
  - ANAPHYLACTIC SHOCK [None]
  - RASH [None]
